FAERS Safety Report 8322321-2 (Version None)
Quarter: 2012Q2

REPORT INFORMATION
  Report Type: 
  Country: None (occurrence: None)
  Receive Date: 20120430
  Receipt Date: 20120423
  Transmission Date: 20120825
  Serious: Yes (Hospitalization)
  Sender: FDA-Public Use
  Company Number: PHHY2012AR034710

PATIENT
  Age: 61 Year
  Sex: Female

DRUGS (3)
  1. ONBREZ [Suspect]
     Indication: CHRONIC OBSTRUCTIVE PULMONARY DISEASE
     Dosage: 150 MG, QD
     Dates: start: 20120201
  2. DILTIAZEM [Concomitant]
  3. ACETYLSALICYLIC ACID SRT [Concomitant]

REACTIONS (1)
  - ARRHYTHMIA [None]
